FAERS Safety Report 23953845 (Version 1)
Quarter: 2024Q2

REPORT INFORMATION
  Report Type: Spontaneous
  Country: DE (occurrence: DE)
  Receive Date: 20240609
  Receipt Date: 20240609
  Transmission Date: 20240716
  Serious: Yes (Other)
  Sender: FDA-Public Use
  Company Number: None

PATIENT
  Age: 57 Year
  Sex: Female
  Weight: 52.7 kg

DRUGS (49)
  1. ZOLEDRONIC ACID [Suspect]
     Active Substance: ZOLEDRONIC ACID
     Indication: Metastases to bone
     Dosage: Q4WEEKS, 2ND DOSE ON 16-DEC-2020 AND 3RD DOSE ON 13-JAN-2021. DATE OF LAST DOSE (4 MG) APPLICATION P
     Route: 065
     Dates: start: 20201118
  2. ZOLEDRONIC ACID [Suspect]
     Active Substance: ZOLEDRONIC ACID
     Dosage: Q4WEEKS, 2ND DOSE ON 16-DEC-2020 AND 3RD DOSE ON 13-JAN-2021. DATE OF LAST DOSE (4 MG) APPLICATION P
     Route: 065
     Dates: start: 20201216
  3. ZOLEDRONIC ACID [Suspect]
     Active Substance: ZOLEDRONIC ACID
     Dosage: 3RD DOSE ON 13JAN2021
     Route: 065
     Dates: start: 20210113
  4. PERJETA [Suspect]
     Active Substance: PERTUZUMAB
     Indication: Breast cancer
     Dosage: 420 MG (DATE OF MOST RECENT DOSE PRIOR TO AE 20/JUL/2021: 420 MG)
     Route: 065
     Dates: start: 20201210, end: 20210328
  5. PERJETA [Suspect]
     Active Substance: PERTUZUMAB
     Dosage: 420 MG (DATE OF MOST RECENT DOSE PRIOR TO AE 20-JUL-2021: 420 MG)
     Route: 065
     Dates: start: 20210720
  6. PERJETA [Suspect]
     Active Substance: PERTUZUMAB
     Dosage: 420 MG (DATE OF MOST RECENT DOSE PRIOR TO AE 20/JUL/2021: 420 MG)??STARTED ON 18-MAY-2021
     Route: 065
     Dates: end: 20220608
  7. DOCETAXEL [Suspect]
     Active Substance: DOCETAXEL\DOCETAXEL ANHYDROUS
     Indication: Breast cancer
     Dosage: 120 MG (DATE OF LAST DOSE (118 MG) APPLICATION PRIOR EVENT 10-DEC-2020) DATE OF LAST DOSE (118 MG) A
     Route: 065
     Dates: start: 20201118, end: 20210104
  8. KANJINTI [Suspect]
     Active Substance: TRASTUZUMAB-ANNS
     Indication: Breast cancer
     Dosage: 336 MG (DATE OF LAST DOSE (336 MG) APPLICATION PRIOR EVENT: 10/DEC/2020 DATE OF LAST DOSE (336 MG) A
     Route: 041
     Dates: start: 20201210, end: 20210328
  9. KANJINTI [Suspect]
     Active Substance: TRASTUZUMAB-ANNS
     Dosage: 336 MG (DATE OF MOST RECENT DOSE PRIOR TO AE 20/JUL/2021: 326 MG)
     Route: 041
     Dates: start: 20210518, end: 20220608
  10. VITAMIN C [Concomitant]
     Active Substance: ASCORBIC ACID
     Indication: Product used for unknown indication
     Dosage: DAILY
     Dates: start: 20230531
  11. VITAMIN C [Concomitant]
     Active Substance: ASCORBIC ACID
     Dates: start: 20230116, end: 20230530
  12. NISITA [SODIUM BICARBONATE;SODIUM CHLORIDE] [Concomitant]
     Indication: Product used for unknown indication
     Dosage: 9999.99 UNKNOWN, DAILY
     Dates: start: 20211103, end: 20220427
  13. SEA SALT [Concomitant]
     Active Substance: SEA SALT
     Indication: Product used for unknown indication
     Dosage: 0.5 DAILY
     Route: 045
     Dates: start: 20211026
  14. POLYETHYLENE GLYCOLS [Concomitant]
     Active Substance: POLYETHYLENE GLYCOLS
     Indication: Product used for unknown indication
     Dates: start: 20230620, end: 20230624
  15. POLYETHYLENE GLYCOLS [Concomitant]
     Active Substance: POLYETHYLENE GLYCOLS
     Dosage: PM (AS NEEDED)
     Dates: start: 20230530, end: 20230603
  16. POLYETHYLENE GLYCOLS [Concomitant]
     Active Substance: POLYETHYLENE GLYCOLS
     Dates: start: 20230801, end: 20230801
  17. POLYETHYLENE GLYCOLS [Concomitant]
     Active Substance: POLYETHYLENE GLYCOLS
     Dosage: PM (AS NEEDED)
     Dates: start: 20230509, end: 20230512
  18. POLYETHYLENE GLYCOLS [Concomitant]
     Active Substance: POLYETHYLENE GLYCOLS
     Dates: start: 20230822
  19. POLYETHYLENE GLYCOLS [Concomitant]
     Active Substance: POLYETHYLENE GLYCOLS
     Dates: start: 20230711, end: 20230715
  20. DOCONEXENT\ICOSAPENT [Concomitant]
     Active Substance: DOCONEXENT\ICOSAPENT
     Indication: Product used for unknown indication
     Dates: start: 20221216
  21. CALCIUM\CHOLECALCIFEROL [Concomitant]
     Active Substance: CALCIUM\CHOLECALCIFEROL
     Indication: Product used for unknown indication
     Dosage: 400 IU, QD
     Route: 048
     Dates: start: 20201118
  22. CALCIUM\CHOLECALCIFEROL [Concomitant]
     Active Substance: CALCIUM\CHOLECALCIFEROL
     Dosage: CALCIUM 500 MG / VITAMIN D 400 IU DAILY
     Route: 048
     Dates: start: 20201118
  23. DEXAMETHASONE [Concomitant]
     Active Substance: DEXAMETHASONE
     Indication: Product used for unknown indication
     Dosage: 32 MG
     Route: 048
     Dates: start: 20201117, end: 20210106
  24. DEXAMETHASONE [Concomitant]
     Active Substance: DEXAMETHASONE
     Dates: start: 20220930, end: 20221023
  25. DEXAMETHASONE [Concomitant]
     Active Substance: DEXAMETHASONE
     Dosage: D1 CYCLE
     Dates: start: 20230417
  26. DEXAMETHASONE [Concomitant]
     Active Substance: DEXAMETHASONE
     Dates: end: 20220728
  27. DEXAMETHASONE [Concomitant]
     Active Substance: DEXAMETHASONE
     Dates: start: 20220728, end: 20230327
  28. GYNOMUNAL [CHOLESTEROL;HUMULUS LUPULUS;HYALURONIC ACID;TOCOPHERYL ACET [Concomitant]
     Indication: Product used for unknown indication
     Dosage: 2.5 MG
     Route: 061
     Dates: start: 20210208, end: 20210222
  29. GRANISETRON [Concomitant]
     Active Substance: GRANISETRON
     Indication: Product used for unknown indication
     Dosage: PER CYCLE
     Dates: start: 20220728, end: 20230327
  30. OMEPRAZOLE [Concomitant]
     Active Substance: DONEPEZIL HYDROCHLORIDE\OMEPRAZOLE\OMEPRAZOLE MAGNESIUM
     Indication: Product used for unknown indication
     Dosage: 20 MG
     Route: 048
     Dates: start: 20210104, end: 20210109
  31. OMEPRAZOLE [Concomitant]
     Active Substance: DONEPEZIL HYDROCHLORIDE\OMEPRAZOLE\OMEPRAZOLE MAGNESIUM
     Dosage: PM (AS NEEDED)
     Dates: start: 20230123
  32. OMEPRAZOLE [Concomitant]
     Active Substance: DONEPEZIL HYDROCHLORIDE\OMEPRAZOLE\OMEPRAZOLE MAGNESIUM
     Dosage: DAILY
     Dates: start: 20230103, end: 20230109
  33. PANTOPRAZOLE [Concomitant]
     Active Substance: PANTOPRAZOLE
     Indication: Product used for unknown indication
     Dates: start: 20221017, end: 20221023
  34. AKYNZEO [Concomitant]
     Indication: Product used for unknown indication
     Dosage: D1 CYCLE
     Dates: start: 20230417
  35. NOVALGIN (METAMIZOLE SODIUM) [Concomitant]
     Active Substance: METAMIZOLE SODIUM
     Indication: Product used for unknown indication
     Dosage: 500 MG
     Route: 048
     Dates: start: 20210104, end: 20210109
  36. NOVALGIN (METAMIZOLE SODIUM) [Concomitant]
     Active Substance: METAMIZOLE SODIUM
     Dosage: 500 MG
     Dates: start: 20230508
  37. BISOPROLOL [Concomitant]
     Active Substance: BISOPROLOL\BISOPROLOL FUMARATE
     Indication: Product used for unknown indication
     Dosage: TWICE A DAY
     Dates: start: 20220125, end: 20221215
  38. BISOPROLOL [Concomitant]
     Active Substance: BISOPROLOL\BISOPROLOL FUMARATE
     Dosage: 2.5 MG, 0.5 DAY
     Route: 048
     Dates: start: 20210709, end: 20220124
  39. BISOPROLOL [Concomitant]
     Active Substance: BISOPROLOL\BISOPROLOL FUMARATE
     Dates: start: 20221216
  40. ZIEXTENZO [Concomitant]
     Active Substance: PEGFILGRASTIM-BMEZ
     Indication: Product used for unknown indication
  41. DIMETHINDENE MALEATE [Concomitant]
     Active Substance: DIMETHINDENE MALEATE
     Indication: Product used for unknown indication
     Dosage: 4 MG
     Route: 042
     Dates: start: 20201118, end: 20210104
  42. DEXAMETHASONE [Concomitant]
     Active Substance: DEXAMETHASONE
     Indication: Product used for unknown indication
     Dosage: 8 MILLIGRAM
     Route: 042
     Dates: start: 20201118, end: 20210104
  43. ELIQUIS [Concomitant]
     Active Substance: APIXABAN
     Indication: Product used for unknown indication
     Dosage: 5 MG, 0.5 DAY
     Route: 048
     Dates: start: 20210709
  44. IBUPROFEN [Concomitant]
     Active Substance: IBUPROFEN
     Indication: Product used for unknown indication
     Dates: start: 20221025, end: 20221025
  45. IBUPROFEN [Concomitant]
     Active Substance: IBUPROFEN
     Dosage: PM (AS NEEDED)
     Dates: start: 20230123, end: 20230507
  46. MAGNESIUM [Concomitant]
     Active Substance: MAGNESIUM
     Indication: Product used for unknown indication
     Dosage: DAILY
     Dates: start: 20221216
  47. MAGNESIUM [Concomitant]
     Active Substance: MAGNESIUM
     Dosage: THREE TIMES A DAY
     Dates: start: 20220428, end: 20221215
  48. BEPANTHEN AUGEN- UND NASENSALBE [Concomitant]
     Indication: Product used for unknown indication
     Route: 061
     Dates: start: 20210622
  49. ACETAMINOPHEN [Concomitant]
     Active Substance: ACETAMINOPHEN
     Indication: Product used for unknown indication
     Dates: start: 20221024, end: 20221024

REACTIONS (13)
  - Atrial fibrillation [Recovered/Resolved]
  - Osteochondrosis [Not Recovered/Not Resolved]
  - Dry skin [Recovered/Resolved]
  - Anaemia [Recovered/Resolved]
  - Abdominal pain upper [Recovered/Resolved]
  - Vulvovaginal dryness [Recovered/Resolved]
  - Dysgeusia [Recovered/Resolved]
  - Left ventricular dysfunction [Recovered/Resolved]
  - Back pain [Not Recovered/Not Resolved]
  - Chest pain [Recovered/Resolved]
  - Chest discomfort [Recovered/Resolved]
  - Dizziness [Not Recovered/Not Resolved]
  - Underdose [Unknown]

NARRATIVE: CASE EVENT DATE: 20201217
